FAERS Safety Report 23615073 (Version 2)
Quarter: 2024Q1

REPORT INFORMATION
  Report Type: Spontaneous
  Country: US (occurrence: US)
  Receive Date: 20240311
  Receipt Date: 20240319
  Transmission Date: 20240410
  Serious: No
  Sender: FDA-Public Use
  Company Number: US-ELI_LILLY_AND_COMPANY-US202403003613

PATIENT
  Age: 47 Year
  Sex: Female

DRUGS (1)
  1. VERZENIO [Suspect]
     Active Substance: ABEMACICLIB
     Indication: Breast cancer female
     Dosage: UNK UNK, BID
     Route: 048
     Dates: start: 20240214

REACTIONS (8)
  - Supraventricular tachycardia [Unknown]
  - Hot flush [Unknown]
  - Weight increased [Unknown]
  - Abdominal pain upper [Unknown]
  - Arthralgia [Unknown]
  - Constipation [Unknown]
  - Diarrhoea [Unknown]
  - Fatigue [Unknown]
